FAERS Safety Report 7166832-4 (Version None)
Quarter: 2010Q4

REPORT INFORMATION
  Report Type: 
  Country: None (occurrence: None)
  Receive Date: 20101216
  Receipt Date: 20101212
  Transmission Date: 20110411
  Serious: Yes (Life-Threatening)
  Sender: FDA-Public Use
  Company Number: CN-ROCHE-747864

PATIENT
  Age: 19 Year
  Sex: Male
  Weight: 60 kg

DRUGS (4)
  1. AVASTIN [Suspect]
     Route: 041
     Dates: start: 20101122, end: 20101203
  2. OXALIPLATIN [Concomitant]
     Route: 041
     Dates: start: 20101122, end: 20101203
  3. FOLINIC ACID [Concomitant]
     Route: 041
     Dates: start: 20101122, end: 20101203
  4. FLUOROURACIL [Concomitant]
     Route: 041
     Dates: start: 20101122, end: 20101203

REACTIONS (1)
  - INTESTINAL OBSTRUCTION [None]
